FAERS Safety Report 10184432 (Version 1)
Quarter: 2014Q2

REPORT INFORMATION
  Report Type: Spontaneous
  Country: CA (occurrence: CA)
  Receive Date: 20140521
  Receipt Date: 20140521
  Transmission Date: 20141212
  Serious: Yes (Hospitalization)
  Sender: FDA-Public Use
  Company Number: CA-ROCHE-1402501

PATIENT
  Age: 73 Year
  Sex: Female
  Weight: 95 kg

DRUGS (6)
  1. RITUXAN [Suspect]
     Indication: PRODUCT USED FOR UNKNOWN INDICATION
     Route: 042
  2. TREANDA [Suspect]
     Indication: PRODUCT USED FOR UNKNOWN INDICATION
     Dosage: CYCLICAL
     Route: 042
  3. BENADRYL (CANADA) [Concomitant]
     Route: 065
  4. LEVOFLOXACIN [Concomitant]
     Route: 065
  5. ONDANSETRON [Concomitant]
     Route: 065
  6. VALACYCLOVIR [Concomitant]
     Route: 065

REACTIONS (9)
  - Anaemia [Recovered/Resolved]
  - Constipation [Recovered/Resolved]
  - Febrile neutropenia [Recovered/Resolved]
  - Hepatomegaly [Recovered/Resolved]
  - Hypokalaemia [Recovered/Resolved]
  - Hypotension [Recovered/Resolved]
  - Lymphadenopathy [Recovered/Resolved]
  - Splenomegaly [Recovered/Resolved]
  - Stomatitis [Recovered/Resolved]
